FAERS Safety Report 19575853 (Version 1)
Quarter: 2021Q3

REPORT INFORMATION
  Report Type: Spontaneous
  Country: US (occurrence: US)
  Receive Date: 20210719
  Receipt Date: 20210719
  Transmission Date: 20211014
  Serious: Yes (Hospitalization, Other)
  Sender: FDA-Public Use
  Company Number: US-HIKMA PHARMACEUTICALS USA INC.-US-H14001-21-03256

PATIENT
  Age: 72 Year
  Sex: Male
  Weight: 84 kg

DRUGS (4)
  1. FLUOROURACIL. [Suspect]
     Active Substance: FLUOROURACIL
     Indication: CHOLANGIOCARCINOMA
     Route: 042
     Dates: start: 20210412
  2. LEUCOVORIN. [Suspect]
     Active Substance: LEUCOVORIN
     Indication: CHOLANGIOCARCINOMA
     Route: 042
     Dates: start: 20210412
  3. NANOLIPOSOMAL IRINOTECAN [Suspect]
     Active Substance: IRINOTECAN
     Indication: CHOLANGIOCARCINOMA
     Route: 042
     Dates: start: 20210412
  4. NIVOLUMAB [Suspect]
     Active Substance: NIVOLUMAB
     Indication: CHOLANGIOCARCINOMA
     Route: 042
     Dates: start: 20210412

REACTIONS (6)
  - Diarrhoea [Not Recovered/Not Resolved]
  - Blood bilirubin increased [Not Recovered/Not Resolved]
  - Colitis [Unknown]
  - Neutropenia [Unknown]
  - Jaundice [Unknown]
  - Nausea [Unknown]
